FAERS Safety Report 19302178 (Version 2)
Quarter: 2021Q2

REPORT INFORMATION
  Report Type: Spontaneous
  Country: JP (occurrence: JP)
  Receive Date: 20210525
  Receipt Date: 20210526
  Transmission Date: 20210717
  Serious: Yes (Death)
  Sender: FDA-Public Use
  Company Number: JP-ROCHE-2836734

PATIENT
  Age: 86 Year
  Sex: Male

DRUGS (2)
  1. TECENTRIQ [Suspect]
     Active Substance: ATEZOLIZUMAB
     Indication: HEPATOCELLULAR CARCINOMA
     Dosage: 1200 MILLIGRAM, QD
     Route: 041
     Dates: start: 20210406, end: 20210406
  2. AVASTIN [Suspect]
     Active Substance: BEVACIZUMAB
     Indication: HEPATOCELLULAR CARCINOMA
     Dosage: 15 MILLIGRAM/KILOGRAM, QD
     Route: 041
     Dates: start: 20210406, end: 20210406

REACTIONS (2)
  - Pancreatitis acute [Fatal]
  - Cholecystitis acute [Fatal]

NARRATIVE: CASE EVENT DATE: 20210503
